FAERS Safety Report 21709237 (Version 1)
Quarter: 2022Q4

REPORT INFORMATION
  Report Type: Spontaneous
  Country: CN (occurrence: CN)
  Receive Date: 20221210
  Receipt Date: 20221210
  Transmission Date: 20230113
  Serious: Yes (Hospitalization)
  Sender: FDA-Public Use
  Company Number: CN-002147023-NVSC2022CN280384

PATIENT
  Age: 37 Year
  Sex: Male
  Weight: 68 kg

DRUGS (5)
  1. CARBAMAZEPINE [Suspect]
     Active Substance: CARBAMAZEPINE
     Indication: Neuralgia
     Dosage: 200 MG, BID
     Route: 048
     Dates: start: 20220801
  2. METHYLCOBALAMIN [Suspect]
     Active Substance: METHYLCOBALAMIN
     Indication: Nerve injury
     Dosage: 0.5 MG, TID
     Route: 048
     Dates: start: 20220801
  3. ACYCLOVIR [Suspect]
     Active Substance: ACYCLOVIR
     Indication: Antiviral treatment
     Dosage: 0.4 G, TID
     Route: 048
     Dates: start: 20220801
  4. VITAMIN B1 [Concomitant]
     Active Substance: THIAMINE HYDROCHLORIDE
     Indication: Nerve injury
     Dosage: 10 MG, TID
     Route: 048
     Dates: start: 20220801, end: 20220825
  5. VITAMIN B12 [Concomitant]
     Active Substance: CYANOCOBALAMIN
     Indication: Nerve injury
     Dosage: 25 UG, TID
     Route: 048
     Dates: start: 20220801, end: 20220825

REACTIONS (11)
  - Rash maculo-papular [Recovering/Resolving]
  - Pruritus [Recovering/Resolving]
  - Hepatic function abnormal [Recovering/Resolving]
  - Pain [Recovering/Resolving]
  - Laryngopharyngitis [Recovering/Resolving]
  - Body temperature increased [Recovering/Resolving]
  - Skin lesion [Recovering/Resolving]
  - Erythema [Recovered/Resolved]
  - Tenderness [Recovering/Resolving]
  - Scratch [Recovering/Resolving]
  - Scab [Recovering/Resolving]

NARRATIVE: CASE EVENT DATE: 20220825
